FAERS Safety Report 5478120-2 (Version None)
Quarter: 2007Q4

REPORT INFORMATION
  Report Type: 
  Country: None (occurrence: None)
  Receive Date: 20071005
  Receipt Date: 20061024
  Transmission Date: 20080405
  Serious: No
  Sender: FDA-Public Use
  Company Number: US-BRISTOL-MYERS SQUIBB COMPANY-13552765

PATIENT
  Age: 54 Year
  Sex: Female
  Weight: 63 kg

DRUGS (4)
  1. AVAPRO [Suspect]
     Indication: HYPERTENSION
     Dates: start: 20061012
  2. PROVENTIL [Concomitant]
  3. PULMICORT [Concomitant]
  4. ALBUTEROL [Concomitant]

REACTIONS (1)
  - BRONCHOSPASM [None]
